FAERS Safety Report 4934121-1 (Version None)
Quarter: 2006Q1

REPORT INFORMATION
  Report Type: 
  Country: None (occurrence: None)
  Receive Date: 20060303
  Receipt Date: 20060224
  Transmission Date: 20060701
  Serious: Yes (Disabling)
  Sender: FDA-Public Use
  Company Number: 2006027236

PATIENT
  Sex: Female

DRUGS (15)
  1. NEURONTIN [Suspect]
     Indication: DIABETIC NEUROPATHY
     Dosage: 100 MG (100 MG, 1 IN 1 D)
  2. LYRICA [Suspect]
     Indication: DIABETIC NEUROPATHY
     Dosage: 150 MG (75 MG, 2 IN 1 D),
     Dates: start: 20060201
  3. HYDROCHLOROTHIAZIDE [Concomitant]
  4. OMEPRAZOLE [Concomitant]
  5. NORTRIPTYLINE HCL [Concomitant]
  6. PREMARIN [Concomitant]
  7. BENAZEPRIL HCL [Concomitant]
  8. TRICOR [Concomitant]
  9. AMBIEN [Concomitant]
  10. ACETAMINOPHEN [Concomitant]
  11. TIZANIDINE HCL [Concomitant]
  12. BUTALBITAL [Concomitant]
  13. HUMALOG [Concomitant]
  14. LANTUS [Concomitant]
  15. CODEINE (CODEINE) [Concomitant]

REACTIONS (7)
  - BACK DISORDER [None]
  - CONDITION AGGRAVATED [None]
  - DYSSTASIA [None]
  - IMPAIRED WORK ABILITY [None]
  - INTERVERTEBRAL DISC DEGENERATION [None]
  - INTERVERTEBRAL DISC DISPLACEMENT [None]
  - PAIN IN EXTREMITY [None]
